FAERS Safety Report 5033342-X (Version None)
Quarter: 2006Q2

REPORT INFORMATION
  Report Type: 
  Country: None (occurrence: None)
  Receive Date: 20060515
  Receipt Date: 20060320
  Transmission Date: 20061013
  Serious: No
  Sender: FDA-Public Use
  Company Number: S06-USA-01164-01

PATIENT
  Age: 84 Year
  Sex: Female

DRUGS (7)
  1. NAMENDA [Suspect]
     Indication: AMNESIA
     Dosage: 5 MG QD PO
     Route: 048
     Dates: start: 20060317, end: 20060330
  2. NAMENDA [Suspect]
     Indication: AMNESIA
     Dosage: 5 MG BID PO
     Route: 048
     Dates: start: 20060331
  3. ACETAMINOPHEN [Suspect]
     Indication: ARTHRITIS
     Dosage: 1200 MG QD PO
     Route: 048
     Dates: end: 20060402
  4. ACETAMINOPHEN [Suspect]
     Indication: ARTHRITIS
     Dosage: 600 MG QD PO
     Route: 048
     Dates: start: 20060403
  5. SYNTHROID [Concomitant]
  6. LIPITOR [Concomitant]
  7. DYAZIDE [Concomitant]

REACTIONS (3)
  - PARAESTHESIA [None]
  - TENSION HEADACHE [None]
  - TOOTHACHE [None]
